FAERS Safety Report 16696001 (Version 2)
Quarter: 2019Q3

REPORT INFORMATION
  Report Type: Spontaneous
  Country: JP (occurrence: JP)
  Receive Date: 20190813
  Receipt Date: 20190926
  Transmission Date: 20191004
  Serious: Yes (Death)
  Sender: FDA-Public Use
  Company Number: JP-BAYER-2019-146876

PATIENT
  Age: 9 Decade
  Sex: Male

DRUGS (2)
  1. ADEMPAS [Suspect]
     Active Substance: RIOCIGUAT
     Indication: PULMONARY ARTERIAL HYPERTENSION
     Dosage: UNK
     Route: 048
     Dates: start: 20190528, end: 20190805
  2. ADEMPAS [Suspect]
     Active Substance: RIOCIGUAT
     Indication: DERMATOMYOSITIS

REACTIONS (2)
  - Pulmonary arterial hypertension [Fatal]
  - Ascites [Fatal]
